FAERS Safety Report 7374073-0 (Version None)
Quarter: 2011Q1

REPORT INFORMATION
  Report Type: 
  Country: None (occurrence: None)
  Receive Date: 20110325
  Receipt Date: 20110318
  Transmission Date: 20110831
  Serious: Yes (Life-Threatening, Hospitalization)
  Sender: FDA-Public Use
  Company Number: US-US-EMD SERONO, INC.-230142M10USA

PATIENT
  Sex: Female
  Weight: 52 kg

DRUGS (5)
  1. REBIF [Suspect]
     Route: 058
     Dates: start: 20100501
  2. BACLOFEN [Concomitant]
     Dates: start: 20100301
  3. NAPROXEN [Concomitant]
     Indication: PAIN
     Dates: end: 20100101
  4. REBIF [Suspect]
     Indication: MULTIPLE SCLEROSIS
     Route: 058
     Dates: start: 20061103, end: 20100301
  5. BACLOFEN [Concomitant]
     Indication: MUSCLE SPASMS
     Dates: end: 20100101

REACTIONS (8)
  - ABASIA [None]
  - CONVULSION [None]
  - MULTIPLE SCLEROSIS RELAPSE [None]
  - CONTUSION [None]
  - DRUG WITHDRAWAL SYNDROME [None]
  - CONFUSIONAL STATE [None]
  - WEIGHT DECREASED [None]
  - STRESS [None]
